FAERS Safety Report 12994183 (Version 5)
Quarter: 2017Q1

REPORT INFORMATION
  Report Type: Spontaneous
  Country: US (occurrence: US)
  Receive Date: 20161202
  Receipt Date: 20170307
  Transmission Date: 20170428
  Serious: No
  Sender: FDA-Public Use
  Company Number: US-PFIZER INC-2016558919

PATIENT
  Age: 94 Year
  Sex: Male
  Weight: 63.49 kg

DRUGS (7)
  1. PRESERVISION [Concomitant]
     Active Substance: MINERALS\VITAMINS
     Dosage: UNK
  2. VITAMIN D [Concomitant]
     Active Substance: CHOLECALCIFEROL
     Dosage: UNK
  3. POTASSIUM [Concomitant]
     Active Substance: POTASSIUM
     Dosage: UNK
  4. SUTENT [Suspect]
     Active Substance: SUNITINIB MALATE
     Indication: METASTATIC CARCINOID TUMOUR
     Dosage: 25 MG, DAILY
     Dates: start: 201610, end: 2017
  5. COZAAR [Concomitant]
     Active Substance: LOSARTAN POTASSIUM
     Dosage: UNK
  6. COREG [Concomitant]
     Active Substance: CARVEDILOL
     Indication: BLOOD PRESSURE MEASUREMENT
     Dosage: UNK
  7. LASIX [Concomitant]
     Active Substance: FUROSEMIDE
     Dosage: 20 MG, ALTERNATE DAY (M, W, AND FR)

REACTIONS (24)
  - Oral mucosal blistering [Unknown]
  - Irritability [Unknown]
  - Pain in extremity [Unknown]
  - Blister [Not Recovered/Not Resolved]
  - Gait disturbance [Not Recovered/Not Resolved]
  - Rash pustular [Unknown]
  - Oedema peripheral [Unknown]
  - Oral pain [Unknown]
  - Fatigue [Unknown]
  - Depression [Unknown]
  - Skin disorder [Unknown]
  - Weight increased [Unknown]
  - Weight decreased [Unknown]
  - Diarrhoea [Unknown]
  - Onychomycosis [Unknown]
  - Ulcer [Recovered/Resolved]
  - Stomatitis [Not Recovered/Not Resolved]
  - Agitation [Unknown]
  - Swelling [Unknown]
  - Skin lesion [Unknown]
  - Peripheral swelling [Not Recovered/Not Resolved]
  - Product use issue [Unknown]
  - Hypoacusis [Unknown]
  - Joint swelling [Unknown]

NARRATIVE: CASE EVENT DATE: 2016
